FAERS Safety Report 8947688 (Version 1)
Quarter: 2012Q4

REPORT INFORMATION
  Report Type: 
  Country: JP (occurrence: JP)
  Receive Date: 20121205
  Receipt Date: 20121205
  Transmission Date: 20130627
  Serious: Yes (Death, Other)
  Sender: FDA-Public Use
  Company Number: PHHY2012JP111630

PATIENT
  Age: 9 Year
  Sex: Male
  Weight: 40 kg

DRUGS (8)
  1. PREDNISONE [Suspect]
     Indication: PRECURSOR B-LYMPHOBLASTIC LYMPHOMA
     Dosage: 60 mg/m2, daily
  2. VINCRISTINE [Suspect]
     Indication: PRECURSOR B-LYMPHOBLASTIC LYMPHOMA
     Dosage: 1.5 mg/m2, UNK
  3. METHOTREXATE [Suspect]
     Indication: PRECURSOR B-LYMPHOBLASTIC LYMPHOMA
     Dosage: 12.5 mg, UNK
     Route: 037
  4. CYTARABINE [Suspect]
     Indication: PRECURSOR B-LYMPHOBLASTIC LYMPHOMA
     Dosage: 25 g, UNK
     Route: 037
  5. HYDROCORTISONE [Suspect]
     Indication: PRECURSOR B-LYMPHOBLASTIC LYMPHOMA
     Dosage: 25 mg, UNK
     Route: 037
  6. CYCLOPHOSPHAMIDE [Suspect]
     Indication: PRECURSOR B-LYMPHOBLASTIC LYMPHOMA
     Dosage: 1 g/m2
  7. DAUNORUBICIN [Suspect]
     Indication: PRECURSOR B-LYMPHOBLASTIC LYMPHOMA
     Dosage: 40 mg/m2, UNK
  8. ASPARAGINASE [Suspect]
     Indication: PRECURSOR B-LYMPHOBLASTIC LYMPHOMA
     Dosage: 6000 U/m2

REACTIONS (15)
  - Brain herniation [Fatal]
  - Haemorrhage intracranial [Fatal]
  - Neuropathy peripheral [Fatal]
  - Pain [Fatal]
  - Stupor [Fatal]
  - Areflexia [Fatal]
  - Venoocclusive liver disease [Fatal]
  - Effusion [Fatal]
  - Abdominal pain upper [Fatal]
  - Hepatomegaly [Fatal]
  - Abdominal distension [Fatal]
  - Ascites [Fatal]
  - Jaundice [Fatal]
  - Thrombocytopenia [Unknown]
  - Bradycardia [Unknown]
